FAERS Safety Report 8370712-6 (Version None)
Quarter: 2012Q2

REPORT INFORMATION
  Report Type: 
  Country: None (occurrence: None)
  Receive Date: 20120518
  Receipt Date: 20120511
  Transmission Date: 20120825
  Serious: Yes (Hospitalization)
  Sender: FDA-Public Use
  Company Number: DE-ABBOTT-12P-062-0924998-00

PATIENT
  Sex: Male

DRUGS (2)
  1. HUMIRA [Suspect]
     Indication: CROHN'S DISEASE
     Route: 058
     Dates: start: 20120221
  2. SULFASALAZINE [Concomitant]
     Indication: PRODUCT USED FOR UNKNOWN INDICATION

REACTIONS (7)
  - BLOOD IRON DECREASED [None]
  - FLATULENCE [None]
  - HEADACHE [None]
  - DIARRHOEA HAEMORRHAGIC [None]
  - ABSCESS INTESTINAL [None]
  - RASH PUSTULAR [None]
  - NAUSEA [None]
